FAERS Safety Report 6236016-2 (Version None)
Quarter: 2009Q2

REPORT INFORMATION
  Report Type: 
  Country: None (occurrence: None)
  Receive Date: 20090619
  Receipt Date: 20090617
  Transmission Date: 20091009
  Serious: Yes (Other)
  Sender: FDA-Public Use
  Company Number: ZA-BRISTOL-MYERS SQUIBB COMPANY-14541486

PATIENT
  Age: 46 Year
  Sex: Female

DRUGS (6)
  1. ABATACEPT [Suspect]
     Indication: RHEUMATOID ARTHRITIS
     Route: 042
     Dates: start: 20030429, end: 20081105
  2. METHOTREXATE [Suspect]
     Indication: RHEUMATOID ARTHRITIS
     Dates: start: 20031016
  3. DISPRIN [Concomitant]
     Dates: start: 20040623
  4. ESTROFEM [Concomitant]
     Dates: start: 20040913
  5. PURICOS [Concomitant]
     Dates: start: 20050720
  6. MODURETIC 5-50 [Concomitant]
     Dates: start: 20051219

REACTIONS (1)
  - OPTIC NEURITIS [None]
